FAERS Safety Report 11076615 (Version 1)
Quarter: 2015Q2

REPORT INFORMATION
  Report Type: Report from Study
  Country: JP (occurrence: JP)
  Receive Date: 20150429
  Receipt Date: 20150429
  Transmission Date: 20150821
  Serious: Yes (Hospitalization, Other)
  Sender: FDA-Public Use
  Company Number: JP-GILEAD-2013-0069562

PATIENT
  Age: 40 Year
  Sex: Female
  Weight: 44 kg

DRUGS (21)
  1. REVATIO [Concomitant]
     Active Substance: SILDENAFIL CITRATE
     Route: 048
  2. PHELLOBERIN [Concomitant]
     Route: 048
  3. FLOLAN [Concomitant]
     Active Substance: EPOPROSTENOL SODIUM
     Indication: PULMONARY ARTERIAL HYPERTENSION
     Route: 042
  4. PHELLOBERIN [Concomitant]
     Route: 048
  5. SLOW-K [Concomitant]
     Active Substance: POTASSIUM CHLORIDE
     Route: 048
  6. SLOW-K [Concomitant]
     Active Substance: POTASSIUM CHLORIDE
     Route: 048
  7. MYSLEE [Concomitant]
     Active Substance: ZOLPIDEM TARTRATE
     Route: 048
  8. AMBRISENTAN [Suspect]
     Active Substance: AMBRISENTAN
     Indication: PULMONARY ARTERIAL HYPERTENSION
     Dosage: 10 MG, QD
     Route: 048
     Dates: start: 20120119
  9. AMBRISENTAN [Suspect]
     Active Substance: AMBRISENTAN
     Dosage: 7.5 MG, QD
     Route: 048
     Dates: start: 20111215, end: 20120118
  10. FERROUS SULFATE [Concomitant]
     Active Substance: FERROUS SULFATE\FERROUS SULFATE, DRIED
     Indication: ANAEMIA PROPHYLAXIS
     Dosage: UNK
  11. FLOLAN [Concomitant]
     Active Substance: EPOPROSTENOL SODIUM
     Route: 042
  12. BIOFERMIN R [Concomitant]
     Active Substance: BACILLUS SUBTILIS\LACTOBACILLUS ACIDOPHILUS\STREPTOCOCCUS FAECAIS
     Route: 048
  13. ALDACTONE [Concomitant]
     Active Substance: SPIRONOLACTONE
     Route: 048
  14. MYSLEE [Concomitant]
     Active Substance: ZOLPIDEM TARTRATE
     Route: 048
  15. BIOFERMIN R [Concomitant]
     Active Substance: BACILLUS SUBTILIS\LACTOBACILLUS ACIDOPHILUS\STREPTOCOCCUS FAECAIS
     Route: 048
  16. FUROSEMIDE. [Concomitant]
     Active Substance: FUROSEMIDE
     Indication: CARDIOVASCULAR EVENT PROPHYLAXIS
     Route: 048
  17. FUROSEMIDE. [Concomitant]
     Active Substance: FUROSEMIDE
     Route: 048
  18. ALDACTONE [Concomitant]
     Active Substance: SPIRONOLACTONE
     Indication: CARDIOVASCULAR EVENT PROPHYLAXIS
     Route: 048
  19. AMBRISENTAN [Suspect]
     Active Substance: AMBRISENTAN
     Dosage: 2.5 MG, QD
     Route: 048
     Dates: start: 20110921, end: 20111214
  20. REVATIO [Concomitant]
     Active Substance: SILDENAFIL CITRATE
     Indication: PULMONARY ARTERIAL HYPERTENSION
     Route: 048
  21. KEFRAL [Suspect]
     Active Substance: CEFACLOR

REACTIONS (5)
  - Device related infection [Unknown]
  - Device related infection [Recovered/Resolved]
  - Anaemia [Recovered/Resolved]
  - Catheter site infection [Recovered/Resolved]
  - Catheter site infection [Recovering/Resolving]

NARRATIVE: CASE EVENT DATE: 20120130
